FAERS Safety Report 7030023-8 (Version None)
Quarter: 2010Q4

REPORT INFORMATION
  Report Type: 
  Country: None (occurrence: None)
  Receive Date: 20101006
  Receipt Date: 20100922
  Transmission Date: 20110411
  Serious: Yes (Other)
  Sender: FDA-Public Use
  Company Number: PHHY2010BR63117

PATIENT
  Sex: Female
  Weight: 74 kg

DRUGS (5)
  1. DIOVAN HCT [Suspect]
     Dosage: 1 TABLET (160/25 MG), IN THE MORNING
     Route: 048
  2. DIOVAN HCT [Suspect]
     Dosage: 1 TABLET (320/12.5 MG), DAILY
  3. SIMVASTATIN [Concomitant]
     Indication: BLOOD CHOLESTEROL
     Dosage: 1 TABLET (20 MG), AT NIGHT
  4. CELEBRA [Concomitant]
     Indication: SURGERY
     Dosage: 1 TABLET (200 MG), BID
  5. ATENOLOL [Concomitant]
     Indication: MYOCARDIAL INFARCTION
     Dosage: 2 TABLETS (25 MG), AT NIGHT

REACTIONS (5)
  - BLOOD PRESSURE INADEQUATELY CONTROLLED [None]
  - HYPERTENSION [None]
  - NERVOUSNESS [None]
  - SPINAL COLUMN INJURY [None]
  - SURGERY [None]
